FAERS Safety Report 5394101-1 (Version None)
Quarter: 2007Q3

REPORT INFORMATION
  Report Type: 
  Country: None (occurrence: None)
  Receive Date: 20070723
  Receipt Date: 20070314
  Transmission Date: 20080115
  Serious: No
  Sender: FDA-Public Use
  Company Number: A0643227A

PATIENT
  Age: 30 Year
  Sex: Female

DRUGS (2)
  1. AVANDIA [Suspect]
     Dosage: 4MG PER DAY
     Route: 048
     Dates: start: 20070307
  2. NO CONCURRENT MEDICATION [Concomitant]

REACTIONS (1)
  - HYPOMENORRHOEA [None]
